FAERS Safety Report 25239856 (Version 2)
Quarter: 2025Q2

REPORT INFORMATION
  Report Type: Spontaneous
  Country: CA (occurrence: CA)
  Receive Date: 20250425
  Receipt Date: 20250520
  Transmission Date: 20250717
  Serious: Yes (Hospitalization)
  Sender: VERTEX
  Company Number: CA-VERTEX PHARMACEUTICALS-2025-006544

PATIENT
  Age: 0 Year
  Sex: Male
  Weight: 3 kg

DRUGS (1)
  1. TRIKAFTA [Suspect]
     Active Substance: ELEXACAFTOR\IVACAFTOR\TEZACAFTOR
     Indication: Cystic fibrosis
     Route: 048
     Dates: start: 20230424, end: 20230430

REACTIONS (1)
  - Intestinal obstruction [Recovering/Resolving]

NARRATIVE: CASE EVENT DATE: 20230504
